FAERS Safety Report 11681900 (Version 2)
Quarter: 2016Q3

REPORT INFORMATION
  Report Type: Spontaneous
  Country: US (occurrence: US)
  Receive Date: 20151029
  Receipt Date: 20160819
  Transmission Date: 20161109
  Serious: Yes (Death, Hospitalization)
  Sender: FDA-Public Use
  Company Number: US-JNJFOC-20151017712

PATIENT
  Age: 83 Year
  Sex: Male

DRUGS (3)
  1. XARELTO [Suspect]
     Active Substance: RIVAROXABAN
     Indication: THROMBOSIS PROPHYLAXIS
     Route: 048
     Dates: start: 20130807, end: 20151015
  2. XARELTO [Suspect]
     Active Substance: RIVAROXABAN
     Indication: CEREBROVASCULAR ACCIDENT PROPHYLAXIS
     Route: 048
     Dates: start: 20130807, end: 20151015
  3. XARELTO [Suspect]
     Active Substance: RIVAROXABAN
     Indication: ATRIAL FIBRILLATION
     Route: 048
     Dates: start: 20130807, end: 20151015

REACTIONS (7)
  - Haemorrhage [Unknown]
  - Embolism [Unknown]
  - Thrombosis [Unknown]
  - Multiple organ dysfunction syndrome [Fatal]
  - Cerebrovascular accident [Unknown]
  - Septic shock [Fatal]
  - Respiratory failure [Fatal]

NARRATIVE: CASE EVENT DATE: 201508
